FAERS Safety Report 11607485 (Version 3)
Quarter: 2015Q4

REPORT INFORMATION
  Report Type: Spontaneous
  Country: US (occurrence: US)
  Receive Date: 20151007
  Receipt Date: 20151230
  Transmission Date: 20160304
  Serious: Yes (Hospitalization)
  Sender: FDA-Public Use
  Company Number: US-DSJP-DSU-2015-130918

PATIENT

DRUGS (5)
  1. BENICAR [Suspect]
     Active Substance: OLMESARTAN MEDOXOMIL
     Indication: HYPERTENSION
     Dosage: 40 MG, QD
     Dates: start: 201106, end: 201503
  2. BENICAR [Suspect]
     Active Substance: OLMESARTAN MEDOXOMIL
     Dosage: 20 MG, QD
     Dates: end: 201503
  3. ASPIRIN                            /00002701/ [Concomitant]
     Active Substance: ASPIRIN
     Indication: PRODUCT USED FOR UNKNOWN INDICATION
     Dosage: 81 MG, QD
  4. PANTOPRAZOLE SODIUM. [Concomitant]
     Active Substance: PANTOPRAZOLE SODIUM
     Indication: GASTROOESOPHAGEAL REFLUX DISEASE
     Dosage: 40 MG, QD
  5. LOVASTATIN. [Concomitant]
     Active Substance: LOVASTATIN
     Indication: BLOOD CHOLESTEROL
     Dosage: 10 MG, QD

REACTIONS (17)
  - Irritable bowel syndrome [Unknown]
  - Hypokalaemia [Recovering/Resolving]
  - Eating disorder [Unknown]
  - Constipation [Unknown]
  - Anxiety [Unknown]
  - Hepatic steatosis [Unknown]
  - Duodenitis [Unknown]
  - Inflammatory bowel disease [Unknown]
  - Asthenia [Unknown]
  - Ileus [Recovering/Resolving]
  - Metabolic acidosis [Recovering/Resolving]
  - Gastric ulcer [Unknown]
  - Diverticulum [Unknown]
  - Chronic gastritis [Unknown]
  - Depression [Unknown]
  - Duodenal ulcer [Unknown]
  - Enteritis [Unknown]

NARRATIVE: CASE EVENT DATE: 2014
